FAERS Safety Report 8601813-2 (Version None)
Quarter: 2012Q3

REPORT INFORMATION
  Report Type: 
  Country: None (occurrence: None)
  Receive Date: 20120817
  Receipt Date: 20120423
  Transmission Date: 20120928
  Serious: No
  Sender: FDA-Public Use
  Company Number: US-BRISTOL-MYERS SQUIBB COMPANY-16542466

PATIENT
  Age: 6 Year
  Sex: Female
  Weight: 22 kg

DRUGS (6)
  1. ZOFRAN [Concomitant]
  2. KEPPRA [Concomitant]
  3. SEPTRA [Concomitant]
  4. SPRYCEL [Suspect]
     Indication: LEUKAEMIA
     Dosage: AT BED TIME
     Dates: start: 20110101, end: 20120301
  5. LORAZEPAM [Concomitant]
  6. MIRALAX [Concomitant]

REACTIONS (1)
  - PLEURAL EFFUSION [None]
